FAERS Safety Report 21987376 (Version 1)
Quarter: 2023Q1

REPORT INFORMATION
  Report Type: Spontaneous
  Country: DE (occurrence: GB)
  Receive Date: 20230214
  Receipt Date: 20230214
  Transmission Date: 20230417
  Serious: No
  Sender: FDA-Public Use
  Company Number: None

PATIENT
  Age: 65 Year
  Sex: Male
  Weight: 65 kg

DRUGS (1)
  1. CEPHALEXIN [Suspect]
     Active Substance: CEPHALEXIN
     Indication: Urinary tract infection
     Dosage: 500 MILLIGRAM, TID (TABLET, UNCOATED) (3 TIMES A DAY)
     Route: 048
     Dates: start: 20220830

REACTIONS (1)
  - Arthralgia [Not Recovered/Not Resolved]

NARRATIVE: CASE EVENT DATE: 20220830
